FAERS Safety Report 10098631 (Version 1)
Quarter: 2014Q2

REPORT INFORMATION
  Report Type: Spontaneous
  Country: KR (occurrence: KR)
  Receive Date: 20140423
  Receipt Date: 20140423
  Transmission Date: 20141212
  Serious: Yes (Hospitalization)
  Sender: FDA-Public Use
  Company Number: KR-PFIZER INC-2014108371

PATIENT
  Age: 45 Year
  Sex: Male

DRUGS (1)
  1. VIAGRA [Suspect]
     Indication: ERECTILE DYSFUNCTION
     Dosage: FIVE PILLS OF SILDENAFIL (50-MG TABLETS; TOTAL, 250 MG)

REACTIONS (3)
  - Overdose [Recovering/Resolving]
  - Rhabdomyolysis [Recovering/Resolving]
  - Visual impairment [Recovering/Resolving]
